FAERS Safety Report 10672700 (Version 2)
Quarter: 2014Q4

REPORT INFORMATION
  Report Type: Spontaneous
  Country: SE (occurrence: SE)
  Receive Date: 20141223
  Receipt Date: 20141229
  Transmission Date: 20150529
  Serious: Yes (Life-Threatening, Hospitalization, Disabling, Other)
  Sender: FDA-Public Use
  Company Number: SE-ELI_LILLY_AND_COMPANY-SE201412007608

PATIENT
  Age: 43 Year
  Sex: Male
  Weight: 90 kg

DRUGS (5)
  1. ZYPADHERA [Suspect]
     Active Substance: OLANZAPINE PAMOATE
     Indication: BIPOLAR DISORDER
     Dosage: 405 MG, MONTHLY (1/M)
     Route: 030
     Dates: start: 20140624, end: 20140805
  2. ESOMEPRAZOL                        /01479301/ [Concomitant]
     Dosage: 20 MG, BID
     Route: 065
  3. ZYPADHERA [Suspect]
     Active Substance: OLANZAPINE PAMOATE
     Indication: DELUSION
     Dosage: 300 MG, 2/M
     Route: 030
     Dates: start: 20140909, end: 20141203
  4. LITHIUM [Concomitant]
     Active Substance: LITHIUM CARBONATE
     Dosage: 42 MG, UNKNOWN
     Route: 065
     Dates: start: 20141120
  5. LAMICTAL [Concomitant]
     Active Substance: LAMOTRIGINE
     Dosage: 50 MG, UNKNOWN
     Route: 065
     Dates: start: 20141222

REACTIONS (10)
  - Blood pressure increased [Unknown]
  - Pulmonary embolism [Recovered/Resolved with Sequelae]
  - Musculoskeletal stiffness [Recovered/Resolved with Sequelae]
  - Anxiety [Recovered/Resolved with Sequelae]
  - Apathy [Recovered/Resolved with Sequelae]
  - Dizziness [Recovered/Resolved with Sequelae]
  - Pain in extremity [Recovered/Resolved with Sequelae]
  - Heart rate increased [Unknown]
  - Tremor [Recovered/Resolved with Sequelae]
  - Nasopharyngitis [Not Recovered/Not Resolved]

NARRATIVE: CASE EVENT DATE: 201408
